FAERS Safety Report 10039574 (Version 2)
Quarter: 2014Q2

REPORT INFORMATION
  Report Type: Report from Study
  Country: BE (occurrence: BE)
  Receive Date: 20140326
  Receipt Date: 20140412
  Transmission Date: 20141212
  Serious: Yes (Hospitalization)
  Sender: FDA-Public Use
  Company Number: BE-AMGEN-BELCT2014020298

PATIENT
  Age: 85 Year
  Sex: Female

DRUGS (2)
  1. DENOSUMAB [Suspect]
     Indication: OSTEOPOROSIS POSTMENOPAUSAL
     Dosage: 60 MG, Q6MO
     Route: 058
     Dates: start: 20080317
  2. SINTROM [Concomitant]
     Dosage: UNK
     Dates: start: 20121129, end: 20121219

REACTIONS (5)
  - Diverticulitis [Recovered/Resolved]
  - Intestinal fistula [Recovered/Resolved]
  - Uterine fistula [Recovered/Resolved]
  - Vaginal fistula [Recovered/Resolved]
  - Myelofibrosis [Not Recovered/Not Resolved]
